FAERS Safety Report 12541503 (Version 1)
Quarter: 2016Q3

REPORT INFORMATION
  Report Type: Spontaneous
  Country: US (occurrence: US)
  Receive Date: 20160708
  Receipt Date: 20160708
  Transmission Date: 20161109
  Serious: No
  Sender: FDA-Public Use
  Company Number: US-PFM-US-2016-1669

PATIENT
  Age: 5 Month
  Sex: Female
  Weight: 6.05 kg

DRUGS (6)
  1. VITAMIN D [Concomitant]
     Active Substance: CHOLECALCIFEROL
     Indication: PRODUCT USED FOR UNKNOWN INDICATION
  2. HEMANGEOL [Suspect]
     Active Substance: PROPRANOLOL HYDROCHLORIDE
     Indication: HAEMANGIOMA
     Dosage: 1.1 ML, BID (2/DAY)
     Route: 048
     Dates: start: 20160303, end: 20160313
  3. HEMANGEOL [Suspect]
     Active Substance: PROPRANOLOL HYDROCHLORIDE
     Dosage: 1.1 ML, QD (1/DAY)
     Route: 048
     Dates: start: 20160516, end: 20160518
  4. HEMANGEOL [Suspect]
     Active Substance: PROPRANOLOL HYDROCHLORIDE
     Dosage: 1.1 ML, BID (2/DAY)
     Route: 048
     Dates: start: 20160502, end: 20160516
  5. HEMANGEOL [Suspect]
     Active Substance: PROPRANOLOL HYDROCHLORIDE
     Dosage: 2.2 ML, BID (2/DAY)
     Route: 048
     Dates: start: 20160314, end: 20160314
  6. HEMANGEOL [Suspect]
     Active Substance: PROPRANOLOL HYDROCHLORIDE
     Dosage: 1.1 ML, BID (2/DAY)
     Route: 048
     Dates: start: 20160315, end: 20160401

REACTIONS (2)
  - Somnolence [Recovered/Resolved]
  - Muscle twitching [Unknown]

NARRATIVE: CASE EVENT DATE: 20160314
